FAERS Safety Report 25085911 (Version 1)
Quarter: 2025Q1

REPORT INFORMATION
  Report Type: Spontaneous
  Country: CN (occurrence: CN)
  Receive Date: 20250317
  Receipt Date: 20250317
  Transmission Date: 20250409
  Serious: Yes (Hospitalization)
  Sender: NOVARTIS
  Company Number: CN-002147023-NVSC2025CN042918

PATIENT
  Age: 96 Year
  Sex: Male

DRUGS (8)
  1. EXFORGE [Suspect]
     Active Substance: AMLODIPINE BESYLATE\VALSARTAN
     Indication: Pyrexia
     Dosage: 1 DOSAGE FORM, BID (1 TABLET)
     Route: 048
     Dates: start: 20241212, end: 20241226
  2. EXFORGE [Suspect]
     Active Substance: AMLODIPINE BESYLATE\VALSARTAN
     Indication: Pneumonia
  3. EXFORGE [Suspect]
     Active Substance: AMLODIPINE BESYLATE\VALSARTAN
     Indication: Hypertension
  4. EXFORGE [Suspect]
     Active Substance: AMLODIPINE BESYLATE\VALSARTAN
     Indication: Proteinuria
  5. FINERENONE [Suspect]
     Active Substance: FINERENONE
     Indication: Pyrexia
     Dosage: 10 MG, QD
     Route: 048
     Dates: start: 20241212, end: 20241226
  6. FINERENONE [Suspect]
     Active Substance: FINERENONE
     Indication: Pneumonia
  7. FINERENONE [Suspect]
     Active Substance: FINERENONE
     Indication: Hypertension
  8. FINERENONE [Suspect]
     Active Substance: FINERENONE
     Indication: Proteinuria

REACTIONS (1)
  - Hyperkalaemia [Recovered/Resolved]

NARRATIVE: CASE EVENT DATE: 20241226
